FAERS Safety Report 6062842-9 (Version None)
Quarter: 2009Q1

REPORT INFORMATION
  Report Type: 
  Country: None (occurrence: None)
  Receive Date: 20090203
  Receipt Date: 20090127
  Transmission Date: 20090719
  Serious: Yes (Death, Other)
  Sender: FDA-Public Use
  Company Number: PHHO2007MX11312

PATIENT
  Sex: Female

DRUGS (2)
  1. DIOVAN [Suspect]
     Indication: HYPERTENSION
     Dosage: 160 MG/DAY
     Route: 048
     Dates: start: 20050301
  2. GLIBENCLAMIDE [Concomitant]

REACTIONS (3)
  - HYPERGLYCAEMIA [None]
  - HYPERTENSION [None]
  - MYOCARDIAL INFARCTION [None]
